FAERS Safety Report 9204323 (Version 3)
Quarter: 2014Q2

REPORT INFORMATION
  Report Type: Spontaneous
  Country: US (occurrence: US)
  Receive Date: 20130402
  Receipt Date: 20140501
  Transmission Date: 20141212
  Serious: Yes (Disabling)
  Sender: FDA-Public Use
  Company Number: US-009507513-1103USA03601

PATIENT
  Sex: Male
  Weight: 99.79 kg

DRUGS (1)
  1. PROPECIA [Suspect]
     Indication: ALOPECIA
     Dosage: 1 MG, QD
     Route: 048
     Dates: start: 19980615

REACTIONS (43)
  - Anxiety [Unknown]
  - Emotional distress [Unknown]
  - Ecchymosis [Unknown]
  - Diplopia [Recovered/Resolved]
  - Back injury [Unknown]
  - Joint injury [Unknown]
  - Neck injury [Unknown]
  - Laceration [Unknown]
  - Depressed level of consciousness [Unknown]
  - Road traffic accident [Unknown]
  - Sexual dysfunction [Unknown]
  - Disturbance in attention [Unknown]
  - Amnesia [Unknown]
  - Alopecia [Unknown]
  - Insomnia [Unknown]
  - Hypertension [Unknown]
  - Oedema [Unknown]
  - Chest pain [Unknown]
  - Atrial fibrillation [Unknown]
  - Blood triglycerides increased [Unknown]
  - Prostatism [Unknown]
  - Urinary tract infection [Unknown]
  - Weight increased [Unknown]
  - Headache [Not Recovered/Not Resolved]
  - Supraventricular extrasystoles [Unknown]
  - Costochondritis [Unknown]
  - Anaemia [Unknown]
  - Rhinitis allergic [Unknown]
  - Melanocytic naevus [Unknown]
  - Rosacea [Unknown]
  - Calculus ureteric [Unknown]
  - Hydronephrosis [Unknown]
  - Diverticulum [Unknown]
  - Renal aneurysm [Unknown]
  - Nephrolithiasis [Unknown]
  - Post-traumatic headache [Recovering/Resolving]
  - Dizziness [Unknown]
  - Urinary retention [Unknown]
  - Penile neoplasm [Unknown]
  - Penis disorder [Unknown]
  - Gynaecomastia [Unknown]
  - Depression [Unknown]
  - Erectile dysfunction [Unknown]
